FAERS Safety Report 18724637 (Version 1)
Quarter: 2021Q1

REPORT INFORMATION
  Report Type: Spontaneous
  Country: US (occurrence: US)
  Receive Date: 20210111
  Receipt Date: 20210111
  Transmission Date: 20210419
  Serious: Yes (Hospitalization)
  Sender: FDA-Public Use
  Company Number: US-STRIDES ARCOLAB LIMITED-2021SP000345

PATIENT
  Age: 53 Year
  Sex: Male

DRUGS (3)
  1. ASPIRIN [ACETYLSALICYLIC ACID] [Suspect]
     Active Substance: ASPIRIN
     Indication: PRODUCT USED FOR UNKNOWN INDICATION
     Dosage: 30 PILLS OF ASPIRIN (~2500MG)
     Route: 065
  2. VALPROATE [Suspect]
     Active Substance: VALPROIC ACID
     Indication: PRODUCT USED FOR UNKNOWN INDICATION
     Dosage: 5 PILLS
     Route: 065
  3. AMLODIPINE [Suspect]
     Active Substance: AMLODIPINE BESYLATE
     Indication: PRODUCT USED FOR UNKNOWN INDICATION
     Dosage: 15 PILLS OF AMLODIPINE (75MG)
     Route: 065

REACTIONS (8)
  - Distributive shock [Recovered/Resolved]
  - Acute kidney injury [Unknown]
  - Hypoxia [Unknown]
  - Hypotension [Unknown]
  - Acidosis [Unknown]
  - Altered state of consciousness [Unknown]
  - Overdose [Unknown]
  - Pulmonary oedema [Unknown]
